FAERS Safety Report 10838442 (Version 1)
Quarter: 2015Q1

REPORT INFORMATION
  Report Type: Spontaneous
  Country: US (occurrence: US)
  Receive Date: 20150219
  Receipt Date: 20150219
  Transmission Date: 20150721
  Serious: No
  Sender: FDA-Public Use
  Company Number: US-ABBVIE-14P-163-1229709-00

PATIENT
  Age: 27 Year
  Sex: Male
  Weight: 81.72 kg

DRUGS (3)
  1. HUMIRA [Suspect]
     Active Substance: ADALIMUMAB
     Indication: CROHN^S DISEASE
     Dates: start: 201306, end: 201306
  2. HUMIRA [Suspect]
     Active Substance: ADALIMUMAB
     Dates: start: 201306, end: 201306
  3. HUMIRA [Suspect]
     Active Substance: ADALIMUMAB
     Dates: start: 201307

REACTIONS (8)
  - Injection site bruising [Recovered/Resolved]
  - Incorrect dose administered [Unknown]
  - Injection site bruising [Recovered/Resolved]
  - Injection site nodule [Recovered/Resolved]
  - Injection site bruising [Unknown]
  - Device issue [Unknown]
  - Injection site nodule [Recovered/Resolved]
  - Device issue [Unknown]

NARRATIVE: CASE EVENT DATE: 201306
